FAERS Safety Report 5814690-X (Version None)
Quarter: 2008Q3

REPORT INFORMATION
  Report Type: 
  Country: None (occurrence: None)
  Receive Date: 20080718
  Receipt Date: 20080405
  Transmission Date: 20090109
  Serious: No
  Sender: FDA-Public Use
  Company Number: US-KINGPHARMUSA00001-K200800416

PATIENT

DRUGS (1)
  1. LEVOXYL [Suspect]
     Indication: HYPOTHYROIDISM
     Dosage: 50 MCG, QD
     Route: 048
     Dates: start: 19930101

REACTIONS (5)
  - ABNORMAL DREAMS [None]
  - CHANGE OF BOWEL HABIT [None]
  - PALPITATIONS [None]
  - RASH [None]
  - SOMNOLENCE [None]
